FAERS Safety Report 18889222 (Version 1)
Quarter: 2021Q1

REPORT INFORMATION
  Report Type: Report from Study
  Country: None (occurrence: AR)
  Receive Date: 20210212
  Receipt Date: 20210212
  Transmission Date: 20210420
  Serious: Yes (Other)
  Sender: FDA-Public Use
  Company Number: AR-ABBVIE-21K-007-3769770-00

PATIENT
  Age: 62 Year
  Sex: Male

DRUGS (1)
  1. HUMIRA [Suspect]
     Active Substance: ADALIMUMAB
     Indication: RHEUMATOID ARTHRITIS
     Route: 058
     Dates: start: 20180801

REACTIONS (4)
  - Urine analysis abnormal [Unknown]
  - Urinary tract infection [Not Recovered/Not Resolved]
  - Urine odour abnormal [Unknown]
  - Faecaluria [Unknown]

NARRATIVE: CASE EVENT DATE: 20210125
